FAERS Safety Report 8487603-2 (Version None)
Quarter: 2012Q2

REPORT INFORMATION
  Report Type: 
  Country: None (occurrence: None)
  Receive Date: 20120611
  Receipt Date: 20120530
  Transmission Date: 20120825
  Serious: Yes (Hospitalization)
  Sender: FDA-Public Use
  Company Number: 2012032498

PATIENT
  Age: 79 Year
  Sex: Female

DRUGS (1)
  1. PRIVIGEN [Suspect]
     Indication: NON-HODGKIN'S LYMPHOMA STAGE IV
     Dosage: PRIVIGEN SINCE 2011; 100 MG/ML
     Route: 042
     Dates: end: 20120206

REACTIONS (3)
  - HYPOCOMPLEMENTAEMIA [None]
  - SYSTEMIC LUPUS ERYTHEMATOSUS [None]
  - OFF LABEL USE [None]
